FAERS Safety Report 8599259-9 (Version None)
Quarter: 2012Q3

REPORT INFORMATION
  Report Type: 
  Country: None (occurrence: None)
  Receive Date: 20120816
  Receipt Date: 20120305
  Transmission Date: 20120928
  Serious: No
  Sender: FDA-Public Use
  Company Number: US-AMGEN-USASP2012004438

PATIENT
  Sex: Female

DRUGS (1)
  1. NEUPOGEN [Suspect]
     Indication: HAEMATOPOIETIC STEM CELL MOBILISATION
     Dosage: 600 MUG, QD
     Dates: start: 20120120

REACTIONS (2)
  - INCORRECT PRODUCT STORAGE [None]
  - PRODUCT COLOUR ISSUE [None]
